FAERS Safety Report 10066530 (Version 2)
Quarter: 2015Q2

REPORT INFORMATION
  Report Type: Spontaneous
  Country: US (occurrence: US)
  Receive Date: 20140408
  Receipt Date: 20150619
  Transmission Date: 20150821
  Serious: Yes (Death, Hospitalization, Other)
  Sender: FDA-Public Use
  Company Number: US-MERCK-1404USA004119

PATIENT
  Sex: Male
  Weight: 95.24 kg

DRUGS (1)
  1. JANUVIA [Suspect]
     Active Substance: SITAGLIPTIN PHOSPHATE
     Indication: TYPE 2 DIABETES MELLITUS
     Dosage: 100 MG, QD
     Route: 048
     Dates: start: 20090218, end: 20120530

REACTIONS (11)
  - Pancreatic carcinoma metastatic [Fatal]
  - Metastases to liver [Unknown]
  - Bradycardia [Unknown]
  - Fibrin D dimer increased [Unknown]
  - Extrasystoles [Recovered/Resolved]
  - Splenomegaly [Unknown]
  - Metastases to lung [Unknown]
  - Dehydration [Unknown]
  - Cerebrovascular accident [Unknown]
  - Renal failure [Unknown]
  - Hypotension [Recovered/Resolved]

NARRATIVE: CASE EVENT DATE: 200902
